FAERS Safety Report 4425657-0 (Version None)
Quarter: 2004Q3

REPORT INFORMATION
  Report Type: 
  Country: None (occurrence: None)
  Receive Date: 20040716
  Receipt Date: 20040311
  Transmission Date: 20050211
  Serious: Yes (Other)
  Sender: FDA-Public Use
  Company Number: HQWYE755111MAR04

PATIENT
  Age: 13 Year
  Sex: Male

DRUGS (1)
  1. ADVIL [Suspect]
     Dosage: ORAL
     Route: 048

REACTIONS (1)
  - CONVULSION [None]
